FAERS Safety Report 5584005-3 (Version None)
Quarter: 2008Q1

REPORT INFORMATION
  Report Type: 
  Country: None (occurrence: None)
  Receive Date: 20080104
  Receipt Date: 20080104
  Transmission Date: 20080703
  Serious: Yes (Life-Threatening, Other)
  Sender: FDA-Public Use
  Company Number: None

PATIENT
  Age: 69 Year
  Sex: Male
  Weight: 98.4306 kg

DRUGS (3)
  1. FLUOROURACIL-5 8000MG IN 192 ML NORMAL SALINE RX 64880 [Suspect]
     Indication: ANAL CANCER
     Dosage: 2,000MG CONTINUOUS INFUSION X 4 DAYS IV
     Route: 042
     Dates: start: 20071113, end: 20071117
  2. FLUOROURACIL-5 8000MG IN 192 ML NORMAL SALINE RX 64880 [Suspect]
     Indication: SKIN CANCER
     Dosage: 2,000MG CONTINUOUS INFUSION X 4 DAYS IV
     Route: 042
     Dates: start: 20071113, end: 20071117
  3. FLUOROURACIL-5 8000MG IN 192 ML NORMAL SALINE [Suspect]

REACTIONS (7)
  - EYELID EXFOLIATION [None]
  - MEDICATION ERROR [None]
  - ORAL PAIN [None]
  - PHARYNGOLARYNGEAL PAIN [None]
  - PLATELET COUNT DECREASED [None]
  - RASH [None]
  - REFUSAL OF TREATMENT BY PATIENT [None]
